FAERS Safety Report 8811447 (Version 1)
Quarter: 2012Q4

REPORT INFORMATION
  Report Type: Spontaneous
  Country: US (occurrence: None)
  Receive Date: 20120925
  Receipt Date: 20120925
  Transmission Date: 20130627
  Serious: Yes (Hospitalization)
  Sender: FDA-Public Use
  Company Number: None

PATIENT
  Age: 71 Year
  Sex: Male
  Weight: 77.84 kg

DRUGS (24)
  1. CARFILZOMIB [Suspect]
     Indication: ACUTE MYELOID LEUKAEMIA
     Dosage: Days 1, 2, 8, 9, 15, 16
     Dates: start: 20120816
  2. ALLOPURINOL 300 MG [Concomitant]
  3. ASPIRIN [Concomitant]
  4. CARTIA XT [Concomitant]
  5. CIPROFLOXACIN HCL [Concomitant]
  6. CYMBALTA [Concomitant]
  7. DESOXIMETASONE [Concomitant]
  8. DIFLUCAN [Concomitant]
  9. DILTIAZEM HCL [Concomitant]
  10. DOCUSATE SODIUM [Concomitant]
  11. DYAZIDE [Concomitant]
  12. FLUOCINONIDE [Concomitant]
  13. FOLIC ACID [Concomitant]
  14. NYSTATIN [Concomitant]
  15. OXYCODONE-ACETAMINOPHEN [Concomitant]
  16. PROCHLORPENAZINE MALEATE [Concomitant]
  17. REMERON [Concomitant]
  18. SEROQUEL [Concomitant]
  19. TRIAMCINOLONE ACETAMIDE [Concomitant]
  20. VALACYCLOVIR HCL [Concomitant]
  21. VITAMIN B-1 [Concomitant]
  22. VITAMIN C [Concomitant]
  23. VITAMIN E [Concomitant]
  24. ZINC [Concomitant]

REACTIONS (1)
  - Failure to thrive [None]
